FAERS Safety Report 7350146-3 (Version None)
Quarter: 2011Q1

REPORT INFORMATION
  Report Type: 
  Country: None (occurrence: None)
  Receive Date: 20110314
  Receipt Date: 20110302
  Transmission Date: 20110831
  Serious: Yes (Hospitalization)
  Sender: FDA-Public Use
  Company Number: B0494652A

PATIENT
  Sex: Female

DRUGS (3)
  1. FLOLAN [Suspect]
     Indication: PULMONARY HYPERTENSION
     Route: 042
     Dates: start: 20011010
  2. TRACLEER [Concomitant]
     Route: 048
  3. FUROSEMIDE [Concomitant]
     Route: 048

REACTIONS (11)
  - RIGHT VENTRICULAR FAILURE [None]
  - DECREASED APPETITE [None]
  - THROMBOCYTOPENIA [None]
  - FATIGUE [None]
  - WEIGHT DECREASED [None]
  - BLOOD CORTISOL DECREASED [None]
  - GENERALISED OEDEMA [None]
  - PLEURAL EFFUSION [None]
  - BLOOD CORTICOTROPHIN DECREASED [None]
  - HYPOPITUITARISM [None]
  - HYPONATRAEMIA [None]
